FAERS Safety Report 7058700-3 (Version None)
Quarter: 2010Q4

REPORT INFORMATION
  Report Type: 
  Country: None (occurrence: None)
  Receive Date: 20101022
  Receipt Date: 20101019
  Transmission Date: 20110411
  Serious: Yes (Death, Life-Threatening, Other)
  Sender: FDA-Public Use
  Company Number: ES-ROXANE LABORATORIES, INC.-2010-RO-01399RO

PATIENT
  Age: 19 Year
  Sex: Female
  Weight: 75 kg

DRUGS (13)
  1. TOPIRAMATE [Suspect]
     Dosage: 300 MG
  2. ZOLPIDEM [Suspect]
  3. DIAZEPAM [Suspect]
     Indication: GRAND MAL CONVULSION
     Route: 042
  4. MORPHINE [Suspect]
  5. MIDAZOLAM [Suspect]
  6. FLUMAZENIL [Suspect]
  7. ETHANOL [Suspect]
  8. VENLAFAXINE [Suspect]
     Dosage: 150 MG
  9. QUETIAPINE [Suspect]
     Dosage: 300 MG
  10. AMOXICILLIN [Suspect]
     Indication: EVIDENCE BASED TREATMENT
  11. CLAVULANATE POTASSIUM [Suspect]
     Indication: EVIDENCE BASED TREATMENT
  12. PROPOFOL [Suspect]
  13. CLONAZEPAM [Suspect]

REACTIONS (9)
  - BRAIN OEDEMA [None]
  - CARDIOPULMONARY FAILURE [None]
  - GRAND MAL CONVULSION [None]
  - HYPOXIA [None]
  - INTENTIONAL OVERDOSE [None]
  - METABOLIC ACIDOSIS [None]
  - NOSOCOMIAL INFECTION [None]
  - RHABDOMYOLYSIS [None]
  - SUICIDE ATTEMPT [None]
